FAERS Safety Report 9447578 (Version 1)
Quarter: 2013Q3

REPORT INFORMATION
  Report Type: Spontaneous
  Country: US (occurrence: US)
  Receive Date: 20130808
  Receipt Date: 20130808
  Transmission Date: 20140515
  Serious: Yes (Other)
  Sender: FDA-Public Use
  Company Number: US-JNJFOC-20130718875

PATIENT
  Age: 58 Year
  Sex: Female
  Weight: 84.37 kg

DRUGS (4)
  1. SANDOZ FENTANYL TRANSDERMAL SYSTEM [Suspect]
     Indication: PAIN
     Route: 062
     Dates: start: 2012
  2. SANDOZ FENTANYL TRANSDERMAL SYSTEM [Suspect]
     Indication: PAIN
     Route: 062
     Dates: start: 2009
  3. SANDOZ FENTANYL TRANSDERMAL SYSTEM [Suspect]
     Indication: KNEE ARTHROPLASTY
     Route: 062
     Dates: start: 2012
  4. SANDOZ FENTANYL TRANSDERMAL SYSTEM [Suspect]
     Indication: KNEE ARTHROPLASTY
     Route: 062
     Dates: start: 2009

REACTIONS (4)
  - Cataract [Recovered/Resolved]
  - Withdrawal syndrome [Recovered/Resolved]
  - Malaise [Recovered/Resolved]
  - Product quality issue [Unknown]
